FAERS Safety Report 6726222-2 (Version None)
Quarter: 2010Q2

REPORT INFORMATION
  Report Type: 
  Country: None (occurrence: None)
  Receive Date: 20100514
  Receipt Date: 20100503
  Transmission Date: 20101027
  Serious: Yes (Hospitalization)
  Sender: FDA-Public Use
  Company Number: PHHY2010US28789

PATIENT
  Age: 37 Year
  Sex: Female

DRUGS (5)
  1. NEORAL [Suspect]
     Indication: RENAL TRANSPLANT
     Dosage: 300 MG DAILY
     Route: 048
     Dates: start: 19770106
  2. COZAAR [Concomitant]
     Indication: HYPERTENSION
     Dosage: 25 MG DAILY
     Route: 048
     Dates: start: 19980414
  3. PREDNISONE [Concomitant]
     Dosage: 100 MG DAILY
     Route: 048
     Dates: start: 19970128
  4. CATAPRES-TTS-1 [Concomitant]
     Indication: HYPERTENSION
     Dosage: 1 OTHER WEEKLY
     Dates: start: 20000404
  5. CELLCEPT [Concomitant]
     Dosage: 2000 MG DAILY
     Route: 048
     Dates: start: 19970107, end: 20081028

REACTIONS (1)
  - INTESTINAL PERFORATION [None]
